FAERS Safety Report 10439042 (Version 3)
Quarter: 2014Q4

REPORT INFORMATION
  Report Type: Spontaneous
  Country: US (occurrence: US)
  Receive Date: 20140908
  Receipt Date: 20141015
  Transmission Date: 20150528
  Serious: Yes (Other)
  Sender: FDA-Public Use
  Company Number: US-TEVA-506726USA

PATIENT
  Age: 48 Year
  Sex: Female

DRUGS (1)
  1. COPAXONE [Suspect]
     Active Substance: GLATIRAMER ACETATE
     Indication: MULTIPLE SCLEROSIS
     Route: 065
     Dates: start: 20110813

REACTIONS (4)
  - Central nervous system neoplasm [Unknown]
  - Gastrointestinal carcinoma [Unknown]
  - Uterine disorder [Unknown]
  - Abdominal pain [Unknown]

NARRATIVE: CASE EVENT DATE: 201304
